FAERS Safety Report 13358080 (Version 1)
Quarter: 2017Q1

REPORT INFORMATION
  Report Type: Spontaneous
  Country: DE (occurrence: DE)
  Receive Date: 20170322
  Receipt Date: 20170322
  Transmission Date: 20170429
  Serious: Yes (Life-Threatening, Hospitalization)
  Sender: FDA-Public Use
  Company Number: DE-ACCORD-049621

PATIENT
  Age: 65 Year
  Sex: Male
  Weight: 96 kg

DRUGS (4)
  1. LEFLUNOMIDE. [Concomitant]
     Active Substance: LEFLUNOMIDE
     Dosage: DAILY DOSE: 20 MG MILLGRAM(S) EVERY DAYS
     Dates: start: 201611
  2. LANTAREL [Suspect]
     Active Substance: METHOTREXATE SODIUM
     Indication: RHEUMATOID ARTHRITIS
     Dosage: DAILY DOSE: 10 MG MILLGRAM(S) EVERY DAYS
     Route: 048
     Dates: start: 201611, end: 20170221
  3. FOLINIC ACID [Concomitant]
     Active Substance: LEUCOVORIN
  4. METHOTREXATE. [Suspect]
     Active Substance: METHOTREXATE
     Indication: RHEUMATOID ARTHRITIS
     Route: 058
     Dates: start: 201611, end: 20170220

REACTIONS (4)
  - Accidental overdose [Unknown]
  - General physical health deterioration [Recovered/Resolved]
  - Pancytopenia [Recovered/Resolved]
  - Drug prescribing error [Unknown]

NARRATIVE: CASE EVENT DATE: 20170221
